FAERS Safety Report 4765370-3 (Version None)
Quarter: 2005Q3

REPORT INFORMATION
  Report Type: 
  Country: None (occurrence: None)
  Receive Date: 20050908
  Receipt Date: 20050908
  Transmission Date: 20060218
  Serious: No
  Sender: FDA-Public Use
  Company Number: None

PATIENT
  Age: 26 Year
  Sex: Female
  Weight: 56.6996 kg

DRUGS (2)
  1. PAROXETINE HCL [Suspect]
     Indication: SOCIAL PHOBIA
     Dosage: 20 MG PO QD
     Route: 048
  2. PAXIL [Concomitant]

REACTIONS (1)
  - DRUG HYPERSENSITIVITY [None]
